FAERS Safety Report 24154038 (Version 1)
Quarter: 2024Q3

REPORT INFORMATION
  Report Type: Spontaneous
  Country: US (occurrence: US)
  Receive Date: 20240730
  Receipt Date: 20240730
  Transmission Date: 20241017
  Serious: No
  Sender: JOHNSON AND JOHNSON
  Company Number: US-VIIV HEALTHCARE LIMITED-US2024AMR093953

PATIENT
  Age: 55 Year
  Sex: Male

DRUGS (2)
  1. RILPIVIRINE [Suspect]
     Active Substance: RILPIVIRINE
     Indication: HIV infection
     Dosage: UNK UNK, MO 400-600MG
     Route: 065
     Dates: start: 20230626, end: 20240711
  2. CABOTEGRAVIR [Suspect]
     Active Substance: CABOTEGRAVIR
     Indication: HIV infection
     Dosage: UNK UNK, MO 400-600MG
     Route: 065
     Dates: start: 20230626, end: 20240711

REACTIONS (2)
  - Injection site pain [Unknown]
  - Sciatica [Unknown]

NARRATIVE: CASE EVENT DATE: 20240711
